FAERS Safety Report 9557883 (Version 2)
Quarter: 2015Q2

REPORT INFORMATION
  Report Type: Report from Study
  Country: GB (occurrence: GB)
  Receive Date: 20130926
  Receipt Date: 20150514
  Transmission Date: 20150821
  Serious: Yes (Death, Hospitalization)
  Sender: FDA-Public Use
  Company Number: GB-ROCHE-1281119

PATIENT
  Age: 52 Year
  Sex: Male

DRUGS (4)
  1. BEVACIZUMAB [Suspect]
     Active Substance: BEVACIZUMAB
     Indication: GASTRIC CANCER
     Dosage: ON 18/JUN/2013, HE HAD DOSE OF BEVACIZUMAB 900 MG PRIOR TO SAE.
     Route: 042
     Dates: start: 20130423
  2. CAPECITABINE. [Suspect]
     Active Substance: CAPECITABINE
     Indication: GASTRIC CANCER
     Dosage: ON 18/JUN/2013, HE HAD DOSE OF CAPECITABINE 52500 MG PRIOR TO SAE.
     Route: 048
     Dates: start: 20130423
  3. EPIRUBICIN [Suspect]
     Active Substance: EPIRUBICIN
     Indication: GASTRIC CANCER
     Dosage: ON 18/JUN/2013, HE HAD DOSE OF EPIRUBICIN 100 MG PRIOR TO SAE.
     Route: 042
     Dates: start: 20130423
  4. CISPLATIN. [Suspect]
     Active Substance: CISPLATIN
     Indication: GASTRIC CANCER
     Dosage: ON 18/JUN/2013, HE HAD DOSE OF CISPLATIN 120 MG PRIOR TO SAE.
     Route: 042
     Dates: start: 20130423

REACTIONS (1)
  - Haemorrhage [Fatal]

NARRATIVE: CASE EVENT DATE: 20130909
